FAERS Safety Report 9620998 (Version 1)
Quarter: 2013Q4

REPORT INFORMATION
  Report Type: Spontaneous
  Country: US (occurrence: US)
  Receive Date: 20131015
  Receipt Date: 20131015
  Transmission Date: 20140711
  Serious: No
  Sender: FDA-Public Use
  Company Number: US-009507513-1306USA010541

PATIENT
  Sex: Female

DRUGS (1)
  1. COPPERTONE DRY OIL CONTINUOUS SPRAY SPF 10 [Suspect]
     Indication: PRODUCT USED FOR UNKNOWN INDICATION
     Dosage: UNK, UNKNOWN
     Route: 061
     Dates: start: 20130612

REACTIONS (1)
  - Rash generalised [Not Recovered/Not Resolved]
